FAERS Safety Report 18943155 (Version 1)
Quarter: 2021Q1

REPORT INFORMATION
  Report Type: Spontaneous
  Country: US (occurrence: US)
  Receive Date: 20210226
  Receipt Date: 20210226
  Transmission Date: 20210420
  Serious: No
  Sender: FDA-Public Use
  Company Number: US-JNJFOC-20210216485

PATIENT
  Age: 76 Year
  Sex: Female

DRUGS (1)
  1. PEPCID AC [Suspect]
     Active Substance: FAMOTIDINE
     Indication: FLATULENCE
     Dosage: 1 TABLET ONCE A DAY FOR 2 DAYS; DATE OF LAST ADMINISTRATION: 04/FEB/2021
     Route: 048
     Dates: start: 202102

REACTIONS (4)
  - Gait disturbance [Recovered/Resolved]
  - Product use in unapproved indication [Unknown]
  - Abdominal pain upper [Not Recovered/Not Resolved]
  - Dyspepsia [Recovered/Resolved]

NARRATIVE: CASE EVENT DATE: 202102
